FAERS Safety Report 5971792-5 (Version None)
Quarter: 2008Q4

REPORT INFORMATION
  Report Type: 
  Country: None (occurrence: None)
  Receive Date: 20081121
  Receipt Date: 20081117
  Transmission Date: 20090506
  Serious: Yes (Other)
  Sender: FDA-Public Use
  Company Number: 081107-0000874

PATIENT
  Age: 41 Year
  Sex: Male

DRUGS (17)
  1. INDOCIN [Suspect]
     Indication: PATENT DUCTUS ARTERIOSUS
     Dosage: 0.2 MG/KG;
  2. UMBILICAL ARTERIAL LINE (NO PREF. NAME) [Suspect]
     Indication: DEVICE THERAPY
  3. UMBILICAL VENOUS LINE (NO PREF. NAME) [Suspect]
     Indication: DEVICE THERAPY
  4. DOPAMINE HCL [Suspect]
     Indication: HYPOTENSION
  5. TPN [Suspect]
     Indication: MEDICAL DIET
  6. AMINOPHYLLIN [Suspect]
     Indication: DRUG USE FOR UNKNOWN INDICATION
  7. EPINEPHRINE [Suspect]
     Indication: DRUG USE FOR UNKNOWN INDICATION
  8. ERYTHROPOIETIN (ERYTHROPOIETIN) [Suspect]
     Indication: DRUG USE FOR UNKNOWN INDICATION
  9. DEXAMETHASONE TAB [Suspect]
     Indication: DRUG USE FOR UNKNOWN INDICATION
  10. AMPHOTERICIN B [Suspect]
     Indication: INFECTION
  11. FLUCONAZOLE [Suspect]
     Indication: INFECTION
  12. IMIPENEM (IMIPENEM) [Suspect]
     Indication: INFECTION
  13. MEROPENEM (MEROPENEM) [Suspect]
     Indication: INFECTION
  14. VANCOMYCIN [Suspect]
     Indication: INFECTION
  15. TEICOPLANIN (NO PREF. NAME) [Suspect]
     Indication: INFECTION
  16. GENTAMICIN [Concomitant]
  17. AMPICILLIN [Concomitant]

REACTIONS (7)
  - DISEASE RECURRENCE [None]
  - HEPATIC FAILURE [None]
  - HYPERTENSION [None]
  - MULTI-ORGAN FAILURE [None]
  - PERICARDIAL EFFUSION [None]
  - RESPIRATORY DISTRESS [None]
  - SEPSIS [None]
